FAERS Safety Report 19418547 (Version 2)
Quarter: 2021Q2

REPORT INFORMATION
  Report Type: Spontaneous
  Country: DE (occurrence: DE)
  Receive Date: 20210615
  Receipt Date: 20210623
  Transmission Date: 20210717
  Serious: Yes (Other)
  Sender: FDA-Public Use
  Company Number: DE-BRAINTREE LABORATORIES, INC.-2021BTE00456

PATIENT
  Age: 64 Year
  Sex: Male
  Weight: 73 kg

DRUGS (3)
  1. SULGEN [Concomitant]
     Route: 060
  2. EZICLEN [Suspect]
     Active Substance: MAGNESIUM SULFATE\POTASSIUM SULFATE\SODIUM SULFATE
     Indication: COLONOSCOPY
     Dosage: 1 BAG ON EACH DAY (1 SACHET)
     Route: 048
     Dates: start: 20210531, end: 20210601
  3. BECLOMET [Concomitant]
     Route: 045

REACTIONS (14)
  - Restlessness [Recovered/Resolved]
  - Cardiovascular disorder [Recovered/Resolved]
  - Malaise [Unknown]
  - Blood pressure increased [Recovered/Resolved]
  - Paraesthesia [Recovered/Resolved]
  - Nausea [Recovered/Resolved]
  - Headache [Recovered/Resolved]
  - Insomnia [Recovered/Resolved]
  - Ear discomfort [Recovered/Resolved]
  - Muscle rigidity [Recovered/Resolved]
  - Dizziness [Recovered/Resolved]
  - Muscle spasms [Recovered/Resolved]
  - Colitis [Unknown]
  - Malaise [Recovered/Resolved]

NARRATIVE: CASE EVENT DATE: 2021
